FAERS Safety Report 9229626 (Version 1)
Quarter: 2013Q2

REPORT INFORMATION
  Report Type: Spontaneous
  Country: BR (occurrence: BR)
  Receive Date: 20130414
  Receipt Date: 20130414
  Transmission Date: 20140414
  Serious: Yes (Hospitalization)
  Sender: FDA-Public Use
  Company Number: BR-BRISTOL-MYERS SQUIBB COMPANY-18759290

PATIENT
  Age: 56 Year
  Sex: Male
  Weight: 58 kg

DRUGS (5)
  1. APROVEL TABS 300 MG [Suspect]
     Indication: HYPERTENSION
     Route: 048
  2. OLCADIL [Concomitant]
     Dosage: PRN, TABS
     Route: 048
  3. LIPITOR [Concomitant]
     Indication: CEREBROVASCULAR ACCIDENT
     Dosage: TABS, PRN
     Route: 048
  4. LIPITOR [Concomitant]
     Indication: INFARCTION
     Dosage: TABS, PRN
     Route: 048
  5. ACETYLSALICYLIC ACID [Concomitant]
     Indication: THROMBOSIS
     Dosage: TABS
     Route: 048

REACTIONS (2)
  - Infarction [Recovering/Resolving]
  - Gastrointestinal neoplasm [Recovering/Resolving]
